FAERS Safety Report 18003177 (Version 2)
Quarter: 2020Q3

REPORT INFORMATION
  Report Type: Report from Study
  Country: CA (occurrence: CA)
  Receive Date: 20200710
  Receipt Date: 20200819
  Transmission Date: 20201103
  Serious: Yes (Death, Hospitalization)
  Sender: FDA-Public Use
  Company Number: CA-TAKEDA-2020TUS021088

PATIENT
  Sex: Female

DRUGS (3)
  1. PONATINIB [Suspect]
     Active Substance: PONATINIB
     Dosage: 60 MILLIGRAM
     Route: 048
  2. PONATINIB [Suspect]
     Active Substance: PONATINIB
     Dosage: 30 MILLIGRAM
     Route: 048
  3. PONATINIB [Suspect]
     Active Substance: PONATINIB
     Indication: OVARIAN CLEAR CELL CARCINOMA
     Dosage: UNK
     Route: 048

REACTIONS (10)
  - Fluid retention [Unknown]
  - Dyspnoea [Unknown]
  - Viral infection [Unknown]
  - Infection [Unknown]
  - Product dose omission issue [Unknown]
  - Fungal infection [Unknown]
  - Death [Fatal]
  - Off label use [Unknown]
  - Bacterial infection [Unknown]
  - Blood count abnormal [Unknown]

NARRATIVE: CASE EVENT DATE: 20200807
